FAERS Safety Report 4631626-8 (Version None)
Quarter: 2005Q2

REPORT INFORMATION
  Report Type: 
  Country: None (occurrence: None)
  Receive Date: 20050407
  Receipt Date: 20050329
  Transmission Date: 20051028
  Serious: No
  Sender: FDA-Public Use
  Company Number: 2005SE01442

PATIENT
  Age: 76 Year
  Sex: Female

DRUGS (2)
  1. SEROQUEL [Suspect]
     Indication: PSYCHOTIC DISORDER
     Dosage: 300 MG DAILY
     Dates: start: 20050112, end: 20050223
  2. SEROQUEL [Suspect]
     Indication: SCHIZOPHRENIA
     Dosage: 300 MG DAILY
     Dates: start: 20050112, end: 20050223

REACTIONS (2)
  - FACE OEDEMA [None]
  - PHARYNGEAL OEDEMA [None]
